FAERS Safety Report 18092896 (Version 1)
Quarter: 2020Q3

REPORT INFORMATION
  Report Type: Spontaneous
  Country: JP (occurrence: JP)
  Receive Date: 20200730
  Receipt Date: 20200730
  Transmission Date: 20201103
  Serious: Yes (Other)
  Sender: FDA-Public Use
  Company Number: JP-SUN PHARMACEUTICAL INDUSTRIES LTD-2020RR-255645

PATIENT
  Age: 28 Year
  Sex: Female
  Weight: 127 kg

DRUGS (2)
  1. QUETIAPINE. [Suspect]
     Active Substance: QUETIAPINE
     Indication: MAJOR DEPRESSION
     Dosage: 150 MILLIGRAM, BID
     Route: 065
  2. QUETIAPINE. [Suspect]
     Active Substance: QUETIAPINE
     Dosage: INCREASE IN HER QUETIAPINE DOSE (ADDITION OF 50 MG)
     Route: 065

REACTIONS (2)
  - Idiopathic intracranial hypertension [Recovering/Resolving]
  - Abnormal weight gain [Unknown]
